FAERS Safety Report 20568295 (Version 1)
Quarter: 2022Q1

REPORT INFORMATION
  Report Type: Report from Study
  Country: FR (occurrence: None)
  Receive Date: 20220308
  Receipt Date: 20220308
  Transmission Date: 20220424
  Serious: Yes (Death, Hospitalization)
  Sender: FDA-Public Use
  Company Number: FR-ROCHE-3034830

PATIENT
  Age: 76 Year
  Sex: Male
  Weight: 61.4 kg

DRUGS (22)
  1. RITUXIMAB [Suspect]
     Active Substance: RITUXIMAB
     Indication: Diffuse large B-cell lymphoma
     Dosage: ON DAY 1 OF EACH 21-DAY CYCLE FOR UP TO 8 CYCLES.?ON THE SAME DAY, HE RECEIVED MOST RECENT DOSE (650
     Route: 041
     Dates: start: 20220114
  2. GEMCITABINE [Suspect]
     Active Substance: GEMCITABINE
     Indication: Diffuse large B-cell lymphoma
     Dosage: IV ON DAY 2 OF EACH 21-DAY CYCLE FOR UP TO 8 CYCLES.?ON THE SAME DAY, HE RECEIVED MOST RECENT DOSE
     Route: 042
     Dates: start: 20220115
  3. OXALIPLATIN [Suspect]
     Active Substance: OXALIPLATIN
     Indication: Diffuse large B-cell lymphoma
     Dosage: IV ON DAY 2 OF EACH 21-DAY CYCLE FOR UP TO 8 CYCLE.?ON THE SAME DAY, HE RECEIVED MOST RECENT DOSE (1
     Route: 042
     Dates: start: 20220115
  4. FUROSEMIDE [Concomitant]
     Active Substance: FUROSEMIDE
     Route: 042
     Dates: start: 20220122, end: 20220124
  5. FUROSEMIDE [Concomitant]
     Active Substance: FUROSEMIDE
     Route: 042
     Dates: start: 20220121, end: 20220122
  6. HYDROXYZINE [Concomitant]
     Active Substance: HYDROXYZINE HYDROCHLORIDE
     Route: 042
     Dates: start: 20220125, end: 20220131
  7. HYDROXYZINE [Concomitant]
     Active Substance: HYDROXYZINE HYDROCHLORIDE
     Route: 042
     Dates: start: 20220204, end: 20220211
  8. HYDROXYZINE [Concomitant]
     Active Substance: HYDROXYZINE HYDROCHLORIDE
     Route: 042
     Dates: start: 20220202, end: 20220207
  9. OXAZEPAM [Concomitant]
     Active Substance: OXAZEPAM
     Route: 048
     Dates: start: 20220120, end: 20220125
  10. ACETAMINOPHEN [Concomitant]
     Active Substance: ACETAMINOPHEN
     Route: 048
     Dates: start: 20220202, end: 20220221
  11. ACETAMINOPHEN [Concomitant]
     Active Substance: ACETAMINOPHEN
     Route: 048
     Dates: start: 20220110, end: 20220114
  12. PHLOROGLUCINOL [Concomitant]
     Active Substance: PHLOROGLUCINOL
     Route: 048
     Dates: start: 20220110, end: 20220125
  13. RACECADOTRIL [Concomitant]
     Active Substance: RACECADOTRIL
     Route: 048
     Dates: start: 20220110, end: 20220114
  14. PREDNISONE [Concomitant]
     Active Substance: PREDNISONE
     Route: 048
     Dates: start: 20220112, end: 20220116
  15. MIDAZOLAM [Concomitant]
     Active Substance: MIDAZOLAM
     Route: 030
     Dates: start: 20220208, end: 20220222
  16. MIDAZOLAM [Concomitant]
     Active Substance: MIDAZOLAM
     Route: 030
     Dates: start: 20220211, end: 20220213
  17. ESOMEPRAZOLE [Concomitant]
     Active Substance: ESOMEPRAZOLE
     Route: 042
     Dates: start: 20220202, end: 20220210
  18. PANTOPRAZOLE [Concomitant]
     Active Substance: PANTOPRAZOLE
     Route: 042
     Dates: start: 20220210, end: 20220221
  19. SCOPOLAMINE [Concomitant]
     Active Substance: SCOPOLAMINE
     Route: 042
     Dates: start: 20220202, end: 20220210
  20. INNOHEP [Concomitant]
     Active Substance: TINZAPARIN SODIUM
     Route: 042
     Dates: start: 20220202, end: 20220210
  21. PULMICORT TURBUHALER [Concomitant]
     Active Substance: BUDESONIDE
     Route: 048
     Dates: start: 20220213, end: 20220221
  22. SMECTA [Concomitant]
     Active Substance: MONTMORILLONITE
     Route: 048
     Dates: start: 20220110, end: 20220116

REACTIONS (2)
  - Tumour obstruction [Fatal]
  - Intestinal obstruction [Fatal]

NARRATIVE: CASE EVENT DATE: 20220114
